FAERS Safety Report 24049984 (Version 1)
Quarter: 2024Q3

REPORT INFORMATION
  Report Type: Spontaneous
  Country: US (occurrence: US)
  Receive Date: 20240704
  Receipt Date: 20240704
  Transmission Date: 20241017
  Serious: Yes (Death)
  Sender: TEVA
  Company Number: US-TEVA-VS-3213929

PATIENT
  Age: 81 Year
  Sex: Male

DRUGS (1)
  1. AUSTEDO [Suspect]
     Active Substance: DEUTETRABENAZINE
     Indication: Product used for unknown indication
     Dosage: ONE OF THE 12 MG TABLETS AND ONE OF THE 6 MG TABLETS
     Route: 065

REACTIONS (1)
  - Death [Fatal]
